FAERS Safety Report 9548719 (Version 3)
Quarter: 2014Q2

REPORT INFORMATION
  Report Type: Spontaneous
  Country: CN (occurrence: None)
  Receive Date: 20130919
  Receipt Date: 20140519
  Transmission Date: 20141212
  Serious: Yes (Hospitalization)
  Sender: FDA-Public Use
  Company Number: VAL_02724_2013

PATIENT
  Age: 58 Year
  Sex: Female

DRUGS (1)
  1. LOTENSION [Suspect]
     Indication: PRODUCT USED FOR UNKNOWN INDICATION
     Dosage: 1 DF [1% PER DAY])
     Dates: start: 20130903, end: 20130922

REACTIONS (4)
  - Product quality issue [None]
  - Blood pressure increased [None]
  - Drug ineffective [None]
  - Blood pressure inadequately controlled [None]
